FAERS Safety Report 5670784-3 (Version None)
Quarter: 2008Q2

REPORT INFORMATION
  Report Type: 
  Country: None (occurrence: None)
  Receive Date: 20080305
  Receipt Date: 20070530
  Transmission Date: 20081010
  Serious: Yes (Hospitalization)
  Sender: FDA-Public Use
  Company Number: BDI-009631

PATIENT
  Age: 49 Year
  Sex: Female

DRUGS (1)
  1. ISOVUE-370 [Suspect]
     Indication: BREAST LUMP REMOVAL
     Dosage: 100ML ONCE INTRAVENOUS
     Route: 042
     Dates: start: 20070530, end: 20070530

REACTIONS (2)
  - DEPRESSED LEVEL OF CONSCIOUSNESS [None]
  - STRIDOR [None]
